FAERS Safety Report 6558639-3 (Version None)
Quarter: 2010Q1

REPORT INFORMATION
  Report Type: 
  Country: None (occurrence: None)
  Receive Date: 20100129
  Receipt Date: 20100119
  Transmission Date: 20100710
  Serious: Yes (Other)
  Sender: FDA-Public Use
  Company Number: US-WATSON-2010-00763

PATIENT
  Sex: Female

DRUGS (1)
  1. NICOTINE POLACRILEX (WATSON LABORATORIES) [Suspect]
     Indication: DRUG USE FOR UNKNOWN INDICATION
     Dosage: UNK
     Route: 002

REACTIONS (3)
  - MALAISE [None]
  - NEOPLASM MALIGNANT [None]
  - VOMITING [None]
